FAERS Safety Report 16544821 (Version 1)
Quarter: 2019Q3

REPORT INFORMATION
  Report Type: Spontaneous
  Country: GB (occurrence: GB)
  Receive Date: 20190709
  Receipt Date: 20190709
  Transmission Date: 20191004
  Serious: Yes (Other)
  Sender: FDA-Public Use
  Company Number: GB-MYLANLABS-2019M1062240

PATIENT
  Age: 38 Year
  Sex: Female
  Weight: 79 kg

DRUGS (7)
  1. CITALOPRAM [Concomitant]
     Active Substance: CITALOPRAM HYDROBROMIDE
     Dosage: 1 DOSAGE FORM, QD
     Dates: start: 20181213, end: 20190110
  2. MEFENAMIC ACID. [Concomitant]
     Active Substance: MEFENAMIC ACID
     Dosage: 3 DOSAGE FORM, QD
     Dates: start: 20170801
  3. LEVEST                             /00022701/ [Concomitant]
     Dosage: TAKE ONE A DAY FOR 21 DAYS THEN HAVE A 4 DAY BREAK.
     Dates: start: 20181030
  4. TRANEXAMIC ACID. [Concomitant]
     Active Substance: TRANEXAMIC ACID
     Dosage: 6 DOSAGE FORM, QD
     Dates: start: 20170801
  5. PAROXETINE. [Suspect]
     Active Substance: PAROXETINE
     Indication: PRODUCT USED FOR UNKNOWN INDICATION
     Dosage: 20 MILLIGRAM, QD
     Dates: start: 20190109
  6. DRETINE [Concomitant]
     Active Substance: DROSPIRENONE\ETHINYL ESTRADIOL
     Dosage: COMBINED ORAL CONTRACEPTIVE PILL (COCP) IF ACNE OR SIDE EFFECTS WITH OTHER PILLS.
     Dates: start: 20181113
  7. BENZOYL PEROXIDE. [Concomitant]
     Active Substance: BENZOYL PEROXIDE
     Dosage: APPLY AT NIGHT
     Dates: start: 20151113, end: 20181219

REACTIONS (2)
  - Haemorrhage [Recovered/Resolved]
  - Fatigue [Recovered/Resolved]
